FAERS Safety Report 7041544-6 (Version None)
Quarter: 2010Q4

REPORT INFORMATION
  Report Type: 
  Country: None (occurrence: None)
  Receive Date: 20101013
  Receipt Date: 20100707
  Transmission Date: 20110411
  Serious: No
  Sender: FDA-Public Use
  Company Number: US-ASTRAZENECA-2010SE31629

PATIENT
  Age: 60 Year
  Sex: Male

DRUGS (6)
  1. SYMBICORT [Suspect]
     Indication: CHRONIC OBSTRUCTIVE PULMONARY DISEASE
     Dosage: 160MCG BID
     Route: 055
     Dates: start: 20080101, end: 20100601
  2. SYMBICORT [Suspect]
     Dosage: 160MCG BID
     Route: 055
     Dates: start: 20100601
  3. DUONEB [Concomitant]
  4. METOLAZONE [Concomitant]
  5. FUROSEMIDE [Concomitant]
  6. POTASSIUM [Concomitant]

REACTIONS (4)
  - BLOOD POTASSIUM ABNORMAL [None]
  - CHRONIC OBSTRUCTIVE PULMONARY DISEASE [None]
  - DRUG DOSE OMISSION [None]
  - DYSPNOEA [None]
